FAERS Safety Report 11326217 (Version 1)
Quarter: 2015Q3

REPORT INFORMATION
  Report Type: Spontaneous
  Country: AT (occurrence: None)
  Receive Date: 20150729
  Receipt Date: 20150729
  Transmission Date: 20151125
  Serious: Yes (Death)
  Sender: FDA-Public Use
  Company Number: AT-H14001-15-01424

PATIENT
  Age: 80 Year
  Sex: Female

DRUGS (2)
  1. FLUCONAZOLE (FLUCONAZOLE) UNKNOWN (FLUCONAZOLE) [Suspect]
     Active Substance: FLUCONAZOLE
     Indication: HYPERCORTICOIDISM
     Dosage: 200 MG, UNKNOWN
  2. ACETAZOLAMIDE (ACETAZOLAMIDE) (UNKNOWN) [Suspect]
     Active Substance: ACETAZOLAMIDE
     Indication: METABOLIC ALKALOSIS
     Dosage: (250 MG), UNKNOWN

REACTIONS (1)
  - Myelodysplastic syndrome [None]
